FAERS Safety Report 6573484-0 (Version None)
Quarter: 2010Q1

REPORT INFORMATION
  Report Type: 
  Country: None (occurrence: None)
  Receive Date: 20100208
  Receipt Date: 20100202
  Transmission Date: 20100710
  Serious: Yes (Death, Life-Threatening)
  Sender: FDA-Public Use
  Company Number: JP-ELI_LILLY_AND_COMPANY-JP201001005416

PATIENT
  Sex: Male
  Weight: 51.2 kg

DRUGS (6)
  1. ALIMTA [Suspect]
     Indication: LUNG ADENOCARCINOMA STAGE III
     Dosage: 730 MG/KG, OTHER
     Route: 042
     Dates: start: 20091215, end: 20100105
  2. PANVITAN [Concomitant]
     Dosage: 1 G, DAILY (1/D)
     Route: 048
     Dates: start: 20091203, end: 20100114
  3. LOXONIN [Concomitant]
     Indication: CANCER PAIN
     Dosage: 60 MG, 3/D
     Route: 048
     Dates: start: 20090811, end: 20100114
  4. LENDORMIN [Concomitant]
     Dosage: 0.25 MG, DAILY (1/D)
     Route: 048
     Dates: start: 20090811, end: 20100114
  5. LANSOPRAZOLE [Concomitant]
     Indication: PROPHYLAXIS
     Dosage: 1 D/F, DAILY (1/D)
     Route: 048
  6. HYDROXOCOBALAMIN ACETATE [Concomitant]
     Dosage: 1 MG, OTHER
     Route: 030
     Dates: start: 20091203, end: 20091203

REACTIONS (2)
  - INTERSTITIAL LUNG DISEASE [None]
  - RASH [None]
